FAERS Safety Report 9120892 (Version 1)
Quarter: 2013Q1

REPORT INFORMATION
  Report Type: Spontaneous
  Country: US (occurrence: US)
  Receive Date: 20130226
  Receipt Date: 20130226
  Transmission Date: 20140127
  Serious: No
  Sender: FDA-Public Use
  Company Number: US-ASTRAZENECA-2013SE07649

PATIENT
  Sex: Female

DRUGS (3)
  1. NEXIUM [Suspect]
     Indication: GASTROOESOPHAGEAL REFLUX DISEASE
     Route: 048
  2. NEXIUM [Suspect]
     Indication: GASTROOESOPHAGEAL REFLUX DISEASE
     Dosage: SOMETIMES HAS TO TAKE A SECOND NEXIUM
     Route: 048
  3. PAIN MEDICATION [Concomitant]

REACTIONS (3)
  - Gastrooesophageal reflux disease [Unknown]
  - Asthma [Unknown]
  - Drug effect decreased [Unknown]
